FAERS Safety Report 8115939-3 (Version None)
Quarter: 2012Q1

REPORT INFORMATION
  Report Type: 
  Country: None (occurrence: None)
  Receive Date: 20120206
  Receipt Date: 20120201
  Transmission Date: 20120608
  Serious: Yes (Other)
  Sender: FDA-Public Use
  Company Number: US-TEVA-319148USA

PATIENT
  Sex: Female
  Weight: 72.64 kg

DRUGS (14)
  1. ZIPRASIDONE HCL [Suspect]
     Indication: MENTAL DISORDER
  2. VENLAFAXINE [Suspect]
  3. ESTROGENS CONJUGATED [Concomitant]
     Indication: HYSTERECTOMY
  4. NAPROXEN [Concomitant]
     Indication: BACK INJURY
     Dosage: PRN
  5. RISPERIDONE [Suspect]
     Indication: MENTAL DISORDER
  6. OMEPRAZOLE [Concomitant]
     Indication: ABDOMINAL DISCOMFORT
     Dosage: PRN
  7. MULTI-VITAMIN [Concomitant]
  8. ZIPRASIDONE HCL [Suspect]
     Indication: DEPRESSION
     Dates: start: 20040101
  9. RISPERIDONE [Suspect]
     Indication: DEPRESSION
  10. SIMVASTATIN [Concomitant]
     Indication: BLOOD CHOLESTEROL INCREASED
  11. VITAMIN B COMPLEX CAP [Concomitant]
  12. AMPHETAMINE AND DEXTROAMPHETAMINE SALTS [Suspect]
     Indication: ATTENTION DEFICIT/HYPERACTIVITY DISORDER
     Dates: start: 20040101
  13. ALPRAZOLAM [Concomitant]
     Indication: ANXIETY DISORDER
  14. CALCIUM [Concomitant]

REACTIONS (8)
  - SCHIZOAFFECTIVE DISORDER [None]
  - INCORRECT DOSE ADMINISTERED [None]
  - DRUG INEFFECTIVE [None]
  - FEELING ABNORMAL [None]
  - WEIGHT INCREASED [None]
  - FATIGUE [None]
  - MALAISE [None]
  - DRUG EFFECT INCREASED [None]
